FAERS Safety Report 17196781 (Version 5)
Quarter: 2020Q1

REPORT INFORMATION
  Report Type: Spontaneous
  Country: BE (occurrence: BE)
  Receive Date: 20191224
  Receipt Date: 20200211
  Transmission Date: 20200409
  Serious: Yes (Hospitalization)
  Sender: FDA-Public Use
  Company Number: BE-CELGENEUS-BEL-20191208101

PATIENT
  Age: 76 Year
  Sex: Female
  Weight: 58.5 kg

DRUGS (24)
  1. VENETOCLAX. [Concomitant]
     Active Substance: VENETOCLAX
     Route: 065
  2. XANAX [Concomitant]
     Active Substance: ALPRAZOLAM
     Indication: PROPHYLAXIS
     Route: 048
     Dates: start: 20180214
  3. NACL [Concomitant]
     Active Substance: SODIUM CHLORIDE
     Indication: PROPHYLAXIS
     Route: 065
     Dates: start: 20180228, end: 20180305
  4. AZACITIDINE. [Suspect]
     Active Substance: AZACITIDINE
     Dosage: 75 MILLIGRAM/SQ. METER
     Route: 058
     Dates: start: 20180416, end: 20180422
  5. DAFALGAN FORTE [Concomitant]
     Indication: HERPES SIMPLEX
  6. TRADONAL ODIS [Concomitant]
     Indication: TONGUE ULCERATION
     Route: 048
     Dates: start: 20180218
  7. XYLOCAINE [Concomitant]
     Active Substance: LIDOCAINE HYDROCHLORIDE
     Indication: HERPES SIMPLEX
  8. ALLOPURINOL. [Concomitant]
     Active Substance: ALLOPURINOL
     Indication: PROPHYLAXIS
     Route: 048
     Dates: start: 20180228, end: 20180311
  9. DAFALGAN FORTE [Concomitant]
     Indication: PAIN IN EXTREMITY
  10. XYLOCAINE [Concomitant]
     Active Substance: LIDOCAINE HYDROCHLORIDE
     Indication: TONGUE ULCERATION
     Route: 061
     Dates: start: 20180220
  11. LITICAN [Concomitant]
     Active Substance: ALIZAPRIDE HYDROCHLORIDE
     Indication: NAUSEA
     Route: 040
     Dates: start: 20180315, end: 20180324
  12. VENETOCLAX. [Concomitant]
     Active Substance: VENETOCLAX
     Indication: ACUTE MYELOID LEUKAEMIA
     Route: 065
  13. DAFALGAN FORTE [Concomitant]
     Indication: FEBRILE NEUTROPENIA
  14. CEFTAZIDIME. [Concomitant]
     Active Substance: CEFTAZIDIME
     Indication: FEBRILE NEUTROPENIA
     Dosage: 6 GRAM
     Route: 041
     Dates: start: 20180310, end: 20180326
  15. PARACETAMOL [Concomitant]
     Active Substance: ACETAMINOPHEN
     Indication: PAIN PROPHYLAXIS
  16. POTASSIUM CHLORIDE. [Concomitant]
     Active Substance: POTASSIUM CHLORIDE
     Indication: DECREASED APPETITE
     Dosage: 40 MILLILITER
     Route: 041
     Dates: start: 20180315, end: 20180403
  17. MOVICOL [Concomitant]
     Active Substance: POLYETHYLENE GLYCOL 3350\POTASSIUM CHLORIDE\SODIUM BICARBONATE\SODIUM CHLORIDE
     Indication: CONSTIPATION PROPHYLAXIS
     Route: 048
     Dates: start: 20180301
  18. GLUCOSE [Concomitant]
     Active Substance: DEXTROSE
     Indication: PROPHYLAXIS
     Route: 065
     Dates: start: 20180228, end: 20180305
  19. PARACETAMOL [Concomitant]
     Active Substance: ACETAMINOPHEN
     Indication: FEBRILE NEUTROPENIA
     Route: 041
     Dates: start: 20180314
  20. AZACITIDINE. [Suspect]
     Active Substance: AZACITIDINE
     Indication: ACUTE MYELOID LEUKAEMIA
     Dosage: 75 MILLIGRAM/SQ. METER
     Route: 058
     Dates: start: 20180301, end: 20180307
  21. DENTIO [Concomitant]
     Indication: PROPHYLAXIS
     Route: 002
     Dates: start: 201802
  22. TRADONAL ODIS [Concomitant]
     Indication: HERPES SIMPLEX
  23. AMLODIPINE [Concomitant]
     Active Substance: AMLODIPINE BESYLATE
     Indication: HYPERTENSION
     Dosage: 5 MILLIGRAM
     Route: 048
     Dates: start: 20180323
  24. DAFALGAN FORTE [Concomitant]
     Indication: TONGUE ULCERATION
     Route: 048
     Dates: start: 201802

REACTIONS (1)
  - Herpes simplex [Recovered/Resolved]

NARRATIVE: CASE EVENT DATE: 20180320
